APPROVED DRUG PRODUCT: CYCLAFEM 0.5/35
Active Ingredient: ETHINYL ESTRADIOL; NORETHINDRONE
Strength: 0.035MG;0.5MG
Dosage Form/Route: TABLET;ORAL-28
Application: A203413 | Product #001
Applicant: PH HEALTH LTD
Approved: Dec 16, 2015 | RLD: No | RS: No | Type: DISCN